FAERS Safety Report 19616631 (Version 1)
Quarter: 2021Q3

REPORT INFORMATION
  Report Type: Spontaneous
  Country: US (occurrence: US)
  Receive Date: 20210727
  Receipt Date: 20210727
  Transmission Date: 20211014
  Serious: No
  Sender: FDA-Public Use
  Company Number: US-ABBVIE-20K-163-3609240-00

PATIENT
  Sex: Female

DRUGS (3)
  1. ARMOUR THYROID [Suspect]
     Active Substance: THYROID, PORCINE
     Route: 065
  2. LEVOTHYROXINE. [Suspect]
     Active Substance: LEVOTHYROXINE
     Indication: PRODUCT USED FOR UNKNOWN INDICATION
     Route: 048
  3. ARMOUR THYROID [Suspect]
     Active Substance: THYROID, PORCINE
     Indication: HYPOTHYROIDISM
     Route: 065
     Dates: start: 2015

REACTIONS (9)
  - Palpitations [Unknown]
  - Insomnia [Unknown]
  - Pruritus [Unknown]
  - Fatigue [Unknown]
  - Lip swelling [Unknown]
  - Irritability [Unknown]
  - Lethargy [Unknown]
  - Dysphagia [Unknown]
  - Lip disorder [Unknown]

NARRATIVE: CASE EVENT DATE: 202008
